FAERS Safety Report 5342157-4 (Version None)
Quarter: 2007Q2

REPORT INFORMATION
  Report Type: 
  Country: None (occurrence: None)
  Receive Date: 20070601
  Receipt Date: 20070529
  Transmission Date: 20071010
  Serious: Yes (Hospitalization)
  Sender: FDA-Public Use
  Company Number: A0653248A

PATIENT
  Age: 64 Year
  Sex: Male

DRUGS (7)
  1. AVANDIA [Suspect]
     Dosage: 4MG TWICE PER DAY
     Route: 048
     Dates: end: 20070529
  2. CRESTOR [Concomitant]
  3. PLAVIX [Concomitant]
  4. AVAPRO [Concomitant]
  5. FEXOFENADINE [Concomitant]
  6. TRICOR [Concomitant]
  7. TOPROL-XL [Concomitant]

REACTIONS (3)
  - ATRIOVENTRICULAR BLOCK [None]
  - DISCOMFORT [None]
  - MUSCLE SPASMS [None]
